FAERS Safety Report 9224164 (Version 1)
Quarter: 2013Q1

REPORT INFORMATION
  Report Type: Spontaneous
  Country: US (occurrence: None)
  Receive Date: 20120830
  Receipt Date: 20120830
  Transmission Date: 20140127
  Serious: Yes (Disabling)
  Sender: FDA-Public Use
  Company Number: PHEH2011US009396

PATIENT
  Age: 90 Year
  Sex: Female
  Weight: 60.3 kg

DRUGS (1)
  1. EXFORGE [Suspect]

REACTIONS (1)
  - Fatigue [None]
